FAERS Safety Report 14390436 (Version 4)
Quarter: 2022Q1

REPORT INFORMATION
  Report Type: Spontaneous
  Country: US (occurrence: None)
  Receive Date: 20180116
  Receipt Date: 20220114
  Transmission Date: 20220424
  Serious: Yes (Other)
  Sender: FDA-Public Use
  Company Number: 2018SE03954

PATIENT
  Age: 1014 Month
  Sex: Female
  Weight: 96.6 kg

DRUGS (43)
  1. NEXIUM [Suspect]
     Active Substance: ESOMEPRAZOLE MAGNESIUM
     Indication: Gastrooesophageal reflux disease
     Dosage: 40.0MG UNKNOWN
     Route: 048
     Dates: start: 2004, end: 2009
  2. NEXIUM [Suspect]
     Active Substance: ESOMEPRAZOLE MAGNESIUM
     Indication: Gastrooesophageal reflux disease
     Dosage: 40.0MG UNKNOWN
     Route: 048
     Dates: start: 2004, end: 2009
  3. NEXIUM [Suspect]
     Active Substance: ESOMEPRAZOLE MAGNESIUM
     Indication: Gastrooesophageal reflux disease
     Dosage: 40.0MG UNKNOWN
     Route: 048
     Dates: start: 20080908
  4. NEXIUM [Suspect]
     Active Substance: ESOMEPRAZOLE MAGNESIUM
     Indication: Gastrooesophageal reflux disease
     Dosage: 40.0MG UNKNOWN
     Route: 048
     Dates: start: 20080908
  5. OMEPRAZOLE [Suspect]
     Active Substance: OMEPRAZOLE
     Indication: Gastrooesophageal reflux disease
     Route: 065
     Dates: start: 2009, end: 2017
  6. OMEPRAZOLE [Suspect]
     Active Substance: OMEPRAZOLE
     Indication: Gastrooesophageal reflux disease
     Route: 065
     Dates: start: 20081002
  7. CLOTRIMAZOLE AND BETAMETHASONE DIPROPIONATE [Concomitant]
     Active Substance: BETAMETHASONE\BETAMETHASONE DIPROPIONATE\CLOTRIMAZOLE
     Indication: Candida infection
     Route: 065
     Dates: start: 2017
  8. DICLOFENAC [Concomitant]
     Active Substance: DICLOFENAC
     Indication: Osteoarthritis
     Route: 065
     Dates: start: 2017
  9. FELODIPINE [Concomitant]
     Active Substance: FELODIPINE
     Indication: Essential hypertension
     Route: 065
     Dates: start: 2004
  10. FLUTICASONE PROPIONATE [Concomitant]
     Active Substance: FLUTICASONE PROPIONATE
     Indication: Rhinitis allergic
     Route: 065
  11. GABAPENTIN [Concomitant]
     Active Substance: GABAPENTIN
     Indication: Post herpetic neuralgia
     Route: 065
     Dates: start: 2009
  12. LOSARTAN POTASSIUM [Concomitant]
     Active Substance: LOSARTAN POTASSIUM
     Indication: Essential hypertension
     Route: 065
     Dates: start: 2013
  13. HYDROCHLOROTHIAZIDE\TRIAMTERENE [Concomitant]
     Active Substance: HYDROCHLOROTHIAZIDE\TRIAMTERENE
     Indication: Essential hypertension
     Route: 065
     Dates: start: 1999
  14. VESICARE [Concomitant]
     Active Substance: SOLIFENACIN SUCCINATE
     Indication: Hypertonic bladder
     Route: 065
     Dates: start: 2006
  15. PREMPRO [Concomitant]
     Active Substance: ESTROGENS, CONJUGATED\MEDROXYPROGESTERONE ACETATE
     Indication: Menopause
     Route: 065
     Dates: start: 1999
  16. METRONIDAZOLE [Concomitant]
     Active Substance: METRONIDAZOLE
     Route: 065
     Dates: start: 1999
  17. MACROBID [Concomitant]
     Active Substance: NITROFURANTOIN\NITROFURANTOIN MONOHYDRATE
     Route: 065
     Dates: start: 2000
  18. LEVAQUIN [Concomitant]
     Active Substance: LEVOFLOXACIN
     Route: 065
     Dates: start: 2000
  19. BENZONATATE [Concomitant]
     Active Substance: BENZONATATE
     Route: 065
     Dates: start: 2000
  20. KLOR-CON [Concomitant]
     Active Substance: POTASSIUM CHLORIDE
     Route: 065
     Dates: start: 2004
  21. ACETAMINOPHEN\PROPOXYPHENE [Concomitant]
     Active Substance: ACETAMINOPHEN\PROPOXYPHENE
     Route: 065
     Dates: start: 2005
  22. TERAZOL [Concomitant]
     Active Substance: TERCONAZOLE
     Route: 065
     Dates: start: 2005
  23. FLUCONAZOLE [Concomitant]
     Active Substance: FLUCONAZOLE
     Route: 065
     Dates: start: 2005
  24. NAPROXEN [Concomitant]
     Active Substance: NAPROXEN
     Route: 065
     Dates: start: 2007
  25. CYCLOBENZAPRINE [Concomitant]
     Active Substance: CYCLOBENZAPRINE
     Route: 065
     Dates: start: 2007
  26. DETROL [Concomitant]
     Active Substance: TOLTERODINE TARTRATE
     Route: 065
     Dates: start: 2007
  27. ALLEGRA-D [Concomitant]
     Active Substance: FEXOFENADINE HYDROCHLORIDE\PSEUDOEPHEDRINE HYDROCHLORIDE
     Route: 065
     Dates: start: 2007
  28. HYDROXYZINE [Concomitant]
     Active Substance: HYDROXYZINE HYDROCHLORIDE
     Route: 065
     Dates: start: 2007
  29. SINGULAIR [Concomitant]
     Active Substance: MONTELUKAST SODIUM
     Route: 065
     Dates: start: 2008
  30. TRAMADOL [Concomitant]
     Active Substance: TRAMADOL
     Route: 065
     Dates: start: 2009
  31. TOVIAZ [Concomitant]
     Active Substance: FESOTERODINE FUMARATE
     Indication: Hypertonic bladder
     Route: 065
     Dates: start: 2010, end: 2016
  32. ENABLEX [Concomitant]
     Active Substance: DARIFENACIN HYDROBROMIDE
     Route: 065
     Dates: start: 2010
  33. FUROSEMIDE [Concomitant]
     Active Substance: FUROSEMIDE
     Indication: Hypertension
     Route: 065
     Dates: start: 2010, end: 2014
  34. METAXALONE [Concomitant]
     Active Substance: METAXALONE
     Route: 065
     Dates: start: 2010
  35. MELOXICAM [Concomitant]
     Active Substance: MELOXICAM
     Route: 065
     Dates: start: 2012
  36. ENALAPRIL [Concomitant]
     Active Substance: ENALAPRIL
     Route: 065
     Dates: start: 2013
  37. AZELASTINE [Concomitant]
     Active Substance: AZELASTINE
     Route: 065
     Dates: start: 2013
  38. RANITIDINE [Concomitant]
     Active Substance: RANITIDINE
     Route: 065
     Dates: start: 2014
  39. TYLENOL [Concomitant]
     Active Substance: ACETAMINOPHEN
     Indication: Arthralgia
     Route: 065
     Dates: start: 2014
  40. VITAMIN D [Concomitant]
     Active Substance: VITAMIN D NOS
     Indication: Vitamin D deficiency
     Route: 065
     Dates: start: 2017
  41. IRON 325 [Concomitant]
     Indication: Anaemia
     Route: 065
     Dates: start: 2016
  42. RESTASIS [Concomitant]
     Active Substance: CYCLOSPORINE
  43. NITROGLYCERIN [Concomitant]
     Active Substance: NITROGLYCERIN
     Route: 065
     Dates: start: 20210612

REACTIONS (3)
  - Chronic kidney disease [Not Recovered/Not Resolved]
  - Renal injury [Unknown]
  - End stage renal disease [Unknown]

NARRATIVE: CASE EVENT DATE: 20141201
